FAERS Safety Report 5136216-9 (Version None)
Quarter: 2006Q4

REPORT INFORMATION
  Report Type: 
  Country: None (occurrence: None)
  Receive Date: 20061027
  Receipt Date: 20061006
  Transmission Date: 20070319
  Serious: Yes (Other)
  Sender: FDA-Public Use
  Company Number: JP-ROCHE-467688

PATIENT
  Age: 85 Year
  Sex: Female

DRUGS (9)
  1. TAMIFLU [Suspect]
     Route: 048
     Dates: start: 20060219, end: 20060223
  2. AMOBAN [Concomitant]
     Dosage: REPORTED AS AMOBAN TABLETS.
     Route: 048
  3. NAPA [Concomitant]
     Dosage: GENERIC REPORTED AS ACETAMINOPHEN.
     Route: 048
     Dates: start: 20060219
  4. KODESORUVAN [Concomitant]
     Route: 048
  5. APRICOT KERNEL OIL [Concomitant]
     Dosage: REPORTED AS APRICOT KERNEL WATER.
     Route: 048
  6. UNSPECIFIED DRUG [Concomitant]
     Dosage: REPORTED AS OPISEZOL(). ORAL FORMULATION (NOT OTHERWISE SPECIFIED).
     Route: 048
  7. NORVASC [Concomitant]
     Route: 048
  8. MICARDIS [Concomitant]
     Route: 048
  9. DIFENIDOL HYDROCHLORIDE [Concomitant]
     Dosage: REPORTED AS MECALMIN (DIFENIDOL HYDROCHLORIDE).
     Route: 048

REACTIONS (3)
  - DELIRIUM [None]
  - RESTLESSNESS [None]
  - SCREAMING [None]
